FAERS Safety Report 4920024-5 (Version None)
Quarter: 2006Q1

REPORT INFORMATION
  Report Type: 
  Country: None (occurrence: None)
  Receive Date: 20060223
  Receipt Date: 20060213
  Transmission Date: 20060701
  Serious: Yes (Death, Hospitalization, Other)
  Sender: FDA-Public Use
  Company Number: 2006AC00261

PATIENT
  Age: 38 Year
  Sex: Male

DRUGS (4)
  1. PLENDIL [Suspect]
     Dosage: GIVEN IN ERROR INSTEAD OF PAXIL
     Route: 048
  2. METOPROLOL [Suspect]
  3. PAXIL [Suspect]
     Indication: DEPRESSION
  4. ALCOHOL [Suspect]

REACTIONS (7)
  - ALCOHOL POISONING [None]
  - CARDIAC ARREST [None]
  - DISORIENTATION [None]
  - DIZZINESS [None]
  - HYPOTENSION [None]
  - MYOCARDIAL INFARCTION [None]
  - WRONG DRUG ADMINISTERED [None]
